FAERS Safety Report 4268747-8 (Version None)
Quarter: 2004Q1

REPORT INFORMATION
  Report Type: 
  Country: None (occurrence: None)
  Receive Date: 20040112
  Receipt Date: 20040112
  Transmission Date: 20041129
  Serious: Yes (Hospitalization, Disabling, Other)
  Sender: FDA-Public Use
  Company Number: None

PATIENT
  Sex: Female
  Weight: 67.1324 kg

DRUGS (1)
  1. ZYPREXA [Suspect]
     Indication: BIPOLAR I DISORDER
     Dosage: 10 MG BID ORAL
     Route: 048

REACTIONS (4)
  - DEPRESSION [None]
  - DIARRHOEA [None]
  - URINARY INCONTINENCE [None]
  - WEIGHT INCREASED [None]
